FAERS Safety Report 22636708 (Version 1)
Quarter: 2023Q2

REPORT INFORMATION
  Report Type: Spontaneous
  Country: US (occurrence: None)
  Receive Date: 20230625
  Receipt Date: 20230625
  Transmission Date: 20230722
  Serious: No
  Sender: FDA-Public Use
  Company Number: None

PATIENT
  Age: 59 Year
  Sex: Female
  Weight: 62.1 kg

DRUGS (10)
  1. ESTRADIOL VAGINAL CREAM [Suspect]
     Active Substance: ESTRADIOL
     Indication: Menopause
     Dosage: 1 GRAM TWICE WEEKLY VAGINAL
     Route: 067
     Dates: start: 20230430, end: 20230620
  2. SYNTHROID [Concomitant]
     Active Substance: LEVOTHYROXINE SODIUM
  3. LIOTHYRONINE [Concomitant]
     Active Substance: LIOTHYRONINE
  4. ESTRADIOL [Concomitant]
     Active Substance: ESTRADIOL
  5. progesterone oral [Concomitant]
  6. CELEBREX [Concomitant]
     Active Substance: CELECOXIB
  7. ZINC [Concomitant]
     Active Substance: ZINC
  8. VITAMINS [Concomitant]
     Active Substance: VITAMINS
  9. FISH OIL [Concomitant]
     Active Substance: FISH OIL
  10. VITAMIN D [Concomitant]
     Active Substance: VITAMIN D NOS

REACTIONS (3)
  - Application site pain [None]
  - Application site pain [None]
  - Product substitution issue [None]

NARRATIVE: CASE EVENT DATE: 20230620
